FAERS Safety Report 6055674-9 (Version None)
Quarter: 2009Q1

REPORT INFORMATION
  Report Type: 
  Country: None (occurrence: None)
  Receive Date: 20090123
  Receipt Date: 20090109
  Transmission Date: 20090719
  Serious: Yes (Other)
  Sender: FDA-Public Use
  Company Number: 141372

PATIENT
  Sex: Male

DRUGS (8)
  1. CYTARABINE [Suspect]
     Indication: BURKITT'S LYMPHOMA
     Dosage: INTRATHECAL
     Route: 037
  2. METHOTREXATE [Suspect]
     Indication: BURKITT'S LYMPHOMA
  3. VINCRISTINE SULFATE [Suspect]
     Indication: BURKITT'S LYMPHOMA
  4. CYCLOPHOSPHAMIDE [Suspect]
     Indication: BURKITT'S LYMPHOMA
  5. DOXORUBICIN HCL [Suspect]
     Indication: BURKITT'S LYMPHOMA
  6. (ANTIVIRALS NOS) [Suspect]
     Indication: HIV INFECTION
  7. IFOSFAMIDE [Suspect]
     Indication: BURKITT'S LYMPHOMA
  8. ETOPOSIDE [Suspect]
     Indication: BURKITT'S LYMPHOMA

REACTIONS (2)
  - B PRECURSOR TYPE ACUTE LEUKAEMIA [None]
  - THROMBOCYTOPENIA [None]
